FAERS Safety Report 7110843-1 (Version None)
Quarter: 2010Q4

REPORT INFORMATION
  Report Type: 
  Country: None (occurrence: None)
  Receive Date: 20101118
  Receipt Date: 20101111
  Transmission Date: 20110411
  Serious: Yes (Hospitalization)
  Sender: FDA-Public Use
  Company Number: CA-BAYER-201040804NA

PATIENT
  Age: 76 Year
  Sex: Female
  Weight: 58 kg

DRUGS (19)
  1. SORAFENIB [Suspect]
     Indication: NEUROENDOCRINE TUMOUR
     Dosage: CYCLE #1
     Route: 048
     Dates: start: 20090406
  2. SORAFENIB [Suspect]
     Dosage: TOTAL DAILY DOSE: 200 MG  UNIT DOSE: 200 MG
     Route: 048
     Dates: start: 20101013, end: 20101109
  3. CYCLOPHOSPHAMIDE [Suspect]
     Indication: NEUROENDOCRINE TUMOUR
     Dosage: CYCLE #1
     Route: 048
     Dates: start: 20090406
  4. CYCLOPHOSPHAMIDE [Suspect]
     Dosage: TOTAL DAILY DOSE: 50 MG
     Route: 048
     Dates: start: 20101013, end: 20101109
  5. METFORMIN HCL [Concomitant]
     Dosage: TOTAL DAILY DOSE: 2000 MG
     Route: 048
     Dates: start: 19850101
  6. IRON [Concomitant]
     Dosage: TOTAL DAILY DOSE: 900 MG
     Route: 048
     Dates: start: 20000101
  7. PRILOSEC [Concomitant]
     Dosage: TOTAL DAILY DOSE: 20 MG
     Route: 048
     Dates: start: 20000101
  8. TIAZAC [Concomitant]
     Dosage: TOTAL DAILY DOSE: 120 MG
     Route: 048
     Dates: start: 19890101
  9. PRAVASTATIN [Concomitant]
     Dosage: TOTAL DAILY DOSE: 40 MG
     Route: 048
     Dates: start: 19890101
  10. FOSINOPRIL SODIUM [Concomitant]
     Dosage: TOTAL DAILY DOSE: 40 MG
     Route: 048
     Dates: start: 19890101
  11. CALCIUM/VITAMIN B [Concomitant]
     Route: 048
     Dates: start: 19990101
  12. NOVOLIN INSULIN [Concomitant]
     Dosage: SLIDING SCALE
     Dates: start: 20040101
  13. SANDOSTATIN [Concomitant]
     Dosage: 1/12
     Route: 030
     Dates: start: 20100720
  14. ATIVAN [Concomitant]
     Dosage: Q HS
     Route: 048
     Dates: start: 20070101
  15. LOMOTIL [Concomitant]
     Dosage: 1-2
     Route: 048
     Dates: start: 20100803
  16. ALEVE (CAPLET) [Concomitant]
     Dosage: 1 AM/PM
     Route: 048
     Dates: start: 20100201
  17. MAGNESIUM [Concomitant]
     Dosage: TOTAL DAILY DOSE: 800 MG
     Route: 048
     Dates: start: 20100817
  18. IMODIUM [Concomitant]
     Dates: start: 20090101
  19. DOMPERIDONE [Concomitant]
     Dates: end: 20101107

REACTIONS (3)
  - NEOPLASM PROGRESSION [None]
  - NEPHROTIC SYNDROME [None]
  - NEUROENDOCRINE TUMOUR [None]
